FAERS Safety Report 18107175 (Version 1)
Quarter: 2020Q3

REPORT INFORMATION
  Report Type: Spontaneous
  Country: US (occurrence: US)
  Receive Date: 20200803
  Receipt Date: 20200803
  Transmission Date: 20201103
  Serious: Yes (Other)
  Sender: FDA-Public Use
  Company Number: None

PATIENT
  Age: 31 Year
  Sex: Female
  Weight: 113.9 kg

DRUGS (1)
  1. NUVARING? GENERIC [Suspect]
     Active Substance: ETHINYL ESTRADIOL\ETONOGESTREL
     Indication: MENORRHAGIA
     Dosage: ?          OTHER DOSE:1 RING;?
     Route: 067
     Dates: start: 201912, end: 202006

REACTIONS (3)
  - Anxiety [None]
  - Product substitution issue [None]
  - Suicidal ideation [None]

NARRATIVE: CASE EVENT DATE: 20200612
